FAERS Safety Report 7803329-X (Version None)
Quarter: 2011Q4

REPORT INFORMATION
  Report Type: 
  Country: None (occurrence: None)
  Receive Date: 20111007
  Receipt Date: 20110923
  Transmission Date: 20120403
  Serious: Yes (Hospitalization)
  Sender: FDA-Public Use
  Company Number: AU-ROCHE-717688

PATIENT
  Sex: Male
  Weight: 71.3 kg

DRUGS (15)
  1. RABEPRAZOLE SODIUM [Concomitant]
  2. ACETAMINOPHEN [Concomitant]
  3. PHENYTOIN [Concomitant]
     Dates: start: 20090901, end: 20100722
  4. OXYCODONE HCL [Concomitant]
     Dosage: PRN.
  5. OXYCONTIN [Concomitant]
  6. HALOPERIDOL [Concomitant]
     Dates: start: 20081101
  7. IBUPROFEN [Concomitant]
  8. VEMURAFENIB [Suspect]
     Indication: METASTATIC MALIGNANT MELANOMA
     Dosage: LAST DOSE PRIOR TO SAE: 23 JUN 2010. MISSED PM DOSE OF 23 JUL 10, AM DOSE OF 24 JUL 10
     Route: 048
     Dates: start: 20100603, end: 20100726
  9. HALOPERIDOL [Concomitant]
     Dates: start: 20081101, end: 20100901
  10. DILANTIN [Concomitant]
  11. MOVIPREP [Concomitant]
     Dosage: FORM: SACHET
  12. ACETAMINOPHEN WITH CODEINE PHOSPHATE [Concomitant]
     Dosage: TAKEN AT NIGHT.
     Dates: start: 20091101, end: 20100801
  13. COLOXYL WITH SENNA [Concomitant]
     Dates: start: 20081101, end: 20100701
  14. DEXAMETHASONE [Concomitant]
     Dates: start: 20100724, end: 20100913
  15. PHENYTOIN [Concomitant]
     Dates: start: 20100723

REACTIONS (2)
  - DEHYDRATION [None]
  - ENCEPHALITIS [None]
